FAERS Safety Report 10307216 (Version 1)
Quarter: 2014Q3

REPORT INFORMATION
  Report Type: Spontaneous
  Country: US (occurrence: US)
  Receive Date: 20140716
  Receipt Date: 20140716
  Transmission Date: 20150326
  Serious: No
  Sender: FDA-Public Use
  Company Number: US-BIOGENIDEC-2014BI067868

PATIENT
  Sex: Female

DRUGS (2)
  1. AVONEX [Suspect]
     Active Substance: INTERFERON BETA-1A
     Indication: MULTIPLE SCLEROSIS
     Route: 030
     Dates: start: 20011101, end: 20130501
  2. AVONEX [Suspect]
     Active Substance: INTERFERON BETA-1A
     Indication: MULTIPLE SCLEROSIS
     Route: 030
     Dates: start: 20140219

REACTIONS (12)
  - Staphylococcal infection [Unknown]
  - Furuncle [Unknown]
  - Memory impairment [Unknown]
  - Contusion [Unknown]
  - Stress [Unknown]
  - Fatigue [Unknown]
  - Influenza like illness [Unknown]
  - Nervousness [Unknown]
  - Depressed mood [Unknown]
  - Tremor [Unknown]
  - Oropharyngeal pain [Unknown]
  - Temperature intolerance [Unknown]
